FAERS Safety Report 9607024 (Version 2)
Quarter: 2013Q4

REPORT INFORMATION
  Report Type: Spontaneous
  Country: JP (occurrence: JP)
  Receive Date: 20131009
  Receipt Date: 20131022
  Transmission Date: 20140711
  Serious: Yes (Other)
  Sender: FDA-Public Use
  Company Number: JP-PFIZER INC-2013283750

PATIENT
  Age: 14 Year
  Sex: 0

DRUGS (1)
  1. SOMATROPIN BS [Suspect]
     Indication: GROWTH HORMONE DEFICIENCY
     Dosage: 0.175 MG/KG, WEEKLY
     Route: 058

REACTIONS (1)
  - Anaemia macrocytic [Recovered/Resolved]
